FAERS Safety Report 23642881 (Version 1)
Quarter: 2024Q1

REPORT INFORMATION
  Report Type: Spontaneous
  Country: US (occurrence: None)
  Receive Date: 20240315
  Receipt Date: 20240315
  Transmission Date: 20240410
  Serious: Yes (Hospitalization)
  Sender: FDA-Public Use
  Company Number: None

PATIENT
  Age: 57 Year
  Sex: Male
  Weight: 79.1 kg

DRUGS (3)
  1. FLUDARABINE [Suspect]
     Active Substance: FLUDARABINE PHOSPHATE
  2. CYCLOPHOSPHAMIDE [Suspect]
     Active Substance: CYCLOPHOSPHAMIDE
  3. YESCARTA [Suspect]
     Active Substance: AXICABTAGENE CILOLEUCEL

REACTIONS (8)
  - Cytokine release syndrome [None]
  - Somnolence [None]
  - Myoclonus [None]
  - Memory impairment [None]
  - Seizure [None]
  - Immune effector cell-associated neurotoxicity syndrome [None]
  - Gastrointestinal haemorrhage [None]
  - Status epilepticus [None]

NARRATIVE: CASE EVENT DATE: 20231103
